FAERS Safety Report 5114644-5 (Version None)
Quarter: 2006Q3

REPORT INFORMATION
  Report Type: 
  Country: None (occurrence: None)
  Receive Date: 20060926
  Receipt Date: 20060914
  Transmission Date: 20061208
  Serious: Yes (Death)
  Sender: FDA-Public Use
  Company Number: US-JNJFOC-20040607917

PATIENT
  Sex: Female
  Weight: 52.62 kg

DRUGS (17)
  1. REMICADE [Suspect]
     Indication: RHEUMATOID ARTHRITIS
     Route: 042
  2. METHYLPREDNISOLONE [Concomitant]
  3. NIFEDIPINE [Concomitant]
  4. NEURONTIN [Concomitant]
  5. MIACALCIN [Concomitant]
  6. ESTRATEST [Concomitant]
     Dosage: 2.5/1.25 MG DAILY
  7. NEXIUM [Concomitant]
  8. HYDROCODONE [Concomitant]
  9. BUTALBITAL, ACETAMINOPHEN, CAFFEINE [Concomitant]
     Dosage: 50/325/40 MG TWICE DAILY
  10. TRAZODONE HCL [Concomitant]
  11. AMITRIPTYLINE HCL [Concomitant]
  12. LORAZEPAM [Concomitant]
  13. CARISOPRODOL [Concomitant]
  14. ASPIRIN [Concomitant]
  15. CALCIUM GLUCONATE [Concomitant]
  16. DITROPAN XL [Concomitant]
  17. DOCUSATE [Concomitant]

REACTIONS (4)
  - CUTANEOUS LUPUS ERYTHEMATOSUS [None]
  - ESSENTIAL HYPERTENSION [None]
  - RAYNAUD'S PHENOMENON [None]
  - SEPSIS SYNDROME [None]
